FAERS Safety Report 10697252 (Version 1)
Quarter: 2015Q1

REPORT INFORMATION
  Report Type: Spontaneous
  Country: US (occurrence: None)
  Receive Date: 20150107
  Receipt Date: 20150107
  Transmission Date: 20150721
  Serious: Yes (Hospitalization, Disabling, Other)
  Sender: FDA-Public Use
  Company Number: None

PATIENT
  Age: 63 Year
  Sex: Female
  Weight: 105.24 kg

DRUGS (2)
  1. ARIMIDEX [Suspect]
     Active Substance: ANASTROZOLE
     Indication: BREAST CANCER IN SITU
     Dosage: 1 PILL
     Route: 048
     Dates: start: 20141207, end: 20141224
  2. ANASTROZOLE 1 MG [Suspect]
     Active Substance: ANASTROZOLE
     Indication: BREAST CANCER IN SITU
     Dosage: ONE PILL ONCE DAILY TAKEN BY MOUTH
     Route: 048
     Dates: start: 20141107, end: 20141206

REACTIONS (20)
  - Arthralgia [None]
  - Dry mouth [None]
  - Spinal pain [None]
  - Palpitations [None]
  - Dizziness [None]
  - Abdominal discomfort [None]
  - Visual impairment [None]
  - Activities of daily living impaired [None]
  - Back pain [None]
  - Quality of life decreased [None]
  - Hypoaesthesia [None]
  - Somnolence [None]
  - Gastrointestinal disorder [None]
  - Flatulence [None]
  - Neck pain [None]
  - Renal pain [None]
  - Asthenia [None]
  - Ageusia [None]
  - Chest pain [None]
  - Blood pressure increased [None]

NARRATIVE: CASE EVENT DATE: 20141118
